FAERS Safety Report 8921155 (Version 3)
Quarter: 2013Q1

REPORT INFORMATION
  Report Type: Report from Study
  Country: JP (occurrence: JP)
  Receive Date: 20121123
  Receipt Date: 20130115
  Transmission Date: 20140127
  Serious: Yes (Hospitalization)
  Sender: FDA-Public Use
  Company Number: JP-009507513-1211JPN009396

PATIENT
  Age: 50 Year
  Sex: Male
  Weight: 65 kg

DRUGS (9)
  1. PEGINTRON [Suspect]
     Indication: CHRONIC HEPATITIS C
     Dosage: 1.5 MICROGRAM PER KILOGRAM, UNK
     Route: 058
     Dates: start: 20120925, end: 20121106
  2. REBETOL [Suspect]
     Indication: CHRONIC HEPATITIS C
     Dosage: 200 MG, UNK
     Route: 048
     Dates: start: 20121106, end: 20121112
  3. REBETOL [Suspect]
     Dosage: 800 MG, UNK
     Route: 048
     Dates: start: 20120925, end: 20121008
  4. REBETOL [Suspect]
     Dosage: 600 MG, UNK
     Route: 048
     Dates: start: 20121009, end: 20121105
  5. TELAVIC [Suspect]
     Indication: CHRONIC HEPATITIS C
     Dosage: 1500 MG, QD
     Route: 048
     Dates: start: 20120930, end: 20121112
  6. TELAVIC [Suspect]
     Dosage: 2250 MG, QD
     Route: 048
     Dates: start: 20120925, end: 20120929
  7. TALION (BEPOTASTINE BESYLATE) [Concomitant]
     Indication: ERYTHEMA
     Dosage: 20 MG, QD
     Route: 048
     Dates: end: 20121005
  8. TALION (BEPOTASTINE BESYLATE) [Concomitant]
     Indication: RASH
     Dosage: 20 MG, QD
     Route: 048
     Dates: end: 20121126
  9. HYALEIN [Concomitant]
     Indication: PROPHYLAXIS
     Dosage: DAILY DOSE UNKNOWN, Q.S.
     Route: 031
     Dates: start: 20121113, end: 20121118

REACTIONS (1)
  - Drug eruption [Not Recovered/Not Resolved]
